FAERS Safety Report 24864896 (Version 3)
Quarter: 2025Q2

REPORT INFORMATION
  Report Type: Report from Study
  Country: US (occurrence: US)
  Receive Date: 20250121
  Receipt Date: 20250404
  Transmission Date: 20250717
  Serious: No
  Sender: ABBVIE
  Company Number: US-ABBVIE-6092828

PATIENT
  Age: 83 Year
  Sex: Female

DRUGS (1)
  1. BOTOX [Suspect]
     Active Substance: ONABOTULINUMTOXINA
     Indication: Torticollis
     Route: 030
     Dates: start: 2008, end: 2008

REACTIONS (1)
  - Poor quality product administered [Recovered/Resolved]

NARRATIVE: CASE EVENT DATE: 20080101
